FAERS Safety Report 14681348 (Version 19)
Quarter: 2019Q2

REPORT INFORMATION
  Report Type: Spontaneous
  Country: US (occurrence: US)
  Receive Date: 20180326
  Receipt Date: 20190522
  Transmission Date: 20190711
  Serious: Yes (Hospitalization, Other)
  Sender: FDA-Public Use
  Company Number: US-ASTRAZENECA-2018SE35010

PATIENT
  Age: 25600 Day
  Sex: Male
  Weight: 122.5 kg

DRUGS (6)
  1. LISINOPRIL/HYDROCHLORTHIAZIDE [Suspect]
     Active Substance: HYDROCHLOROTHIAZIDE\LISINOPRIL
     Indication: HYPERTENSION
     Route: 048
  2. PANTOPRAZOLE [Concomitant]
     Active Substance: PANTOPRAZOLE
     Indication: ABDOMINAL DISCOMFORT
     Route: 048
  3. FLECAINIDE ACETATE. [Concomitant]
     Active Substance: FLECAINIDE ACETATE
     Indication: ATRIAL FIBRILLATION
     Route: 048
  4. ATORVASTATIN [Concomitant]
     Active Substance: ATORVASTATIN
     Indication: BLOOD CHOLESTEROL INCREASED
     Route: 048
  5. RIVAROXABAN [Concomitant]
     Active Substance: RIVAROXABAN
     Indication: ATRIAL FIBRILLATION
     Route: 048
  6. IMFINZI [Suspect]
     Active Substance: DURVALUMAB
     Indication: LUNG NEOPLASM MALIGNANT
     Route: 042
     Dates: start: 20180302

REACTIONS (27)
  - Lung neoplasm malignant [Unknown]
  - Insomnia [Not Recovered/Not Resolved]
  - Dyspnoea [Unknown]
  - Urticaria [Unknown]
  - Dizziness [Unknown]
  - Feeling abnormal [Unknown]
  - Overweight [Unknown]
  - Nasopharyngitis [Unknown]
  - Dehydration [Unknown]
  - Atrial fibrillation [Unknown]
  - Skin disorder [Unknown]
  - Product dose omission [Unknown]
  - Heart rate increased [Recovered/Resolved]
  - Fibula fracture [Recovering/Resolving]
  - Heart rate decreased [Recovering/Resolving]
  - Anxiety [Unknown]
  - Weight increased [Unknown]
  - Fall [Unknown]
  - Hypotension [Unknown]
  - Off label use [Unknown]
  - Fatigue [Unknown]
  - Memory impairment [Unknown]
  - Back pain [Not Recovered/Not Resolved]
  - Intervertebral disc injury [Unknown]
  - Hypertension [Unknown]
  - Head discomfort [Unknown]
  - Pruritus [Unknown]

NARRATIVE: CASE EVENT DATE: 20180302
